FAERS Safety Report 5216822-3 (Version None)
Quarter: 2007Q1

REPORT INFORMATION
  Report Type: 
  Country: None (occurrence: None)
  Receive Date: 20070119
  Receipt Date: 20070110
  Transmission Date: 20070707
  Serious: Yes (Hospitalization)
  Sender: FDA-Public Use
  Company Number: 2007303110

PATIENT
  Sex: Female

DRUGS (2)
  1. BENADRYL [Suspect]
     Indication: SKIN REACTION
     Dosage: ORAL
     Route: 048
     Dates: start: 20070110, end: 20070110
  2. BENADRYL [Suspect]
     Indication: SKIN REACTION
     Dosage: TOPICAL
     Route: 061
     Dates: start: 20070110, end: 20070110

REACTIONS (1)
  - PAIN IN EXTREMITY [None]
